FAERS Safety Report 14121975 (Version 2)
Quarter: 2018Q3

REPORT INFORMATION
  Report Type: Report from Study
  Country: FR (occurrence: FR)
  Receive Date: 20171024
  Receipt Date: 20180925
  Transmission Date: 20181010
  Serious: Yes (Life-Threatening)
  Sender: FDA-Public Use
  Company Number: FR-PFIZER INC-2017455043

PATIENT
  Age: 82 Year
  Sex: Female

DRUGS (1)
  1. TIGECYCLINE. [Suspect]
     Active Substance: TIGECYCLINE
     Indication: OSTEOMYELITIS
     Dosage: 50 MG, 2X/DAY

REACTIONS (1)
  - Hypofibrinogenaemia [Recovered/Resolved]
